FAERS Safety Report 4334324-3 (Version None)
Quarter: 2004Q2

REPORT INFORMATION
  Report Type: 
  Country: None (occurrence: None)
  Receive Date: 20040405
  Receipt Date: 20040323
  Transmission Date: 20050107
  Serious: Yes (Hospitalization)
  Sender: FDA-Public Use
  Company Number: HQWYE196004FEB03

PATIENT
  Age: 80 Year
  Sex: Female

DRUGS (8)
  1. CORDARONE [Suspect]
     Indication: ARRHYTHMIA
     Dosage: 200 MG 3X PER 1 WK; ORAL
     Route: 048
     Dates: start: 20010101, end: 20030301
  2. LEVOTHYROXINE SODIUM [Suspect]
     Dosage: UNKNOWN; ORAL
     Route: 048
  3. OMEPRAZOLE [Suspect]
     Dosage: UNKNOWN; ORAL
     Route: 048
  4. ZOLPIDEM TARTRATE [Suspect]
     Dosage: UNKNOWN; ORAL
     Route: 048
  5. TENORMIN [Suspect]
     Dosage: UNKNOWN; ORAL
     Route: 048
  6. RAMIPRIL [Suspect]
     Dosage: UNKNOWN; ORAL
     Route: 048
  7. ASPIRIN [Concomitant]
  8. VASTAREL (TRIMETAZIDINE HYDROCHLORIDE) [Concomitant]

REACTIONS (2)
  - LUMBAR SPINAL STENOSIS [None]
  - NEUROPATHY PERIPHERAL [None]
